FAERS Safety Report 6707936-7 (Version None)
Quarter: 2010Q2

REPORT INFORMATION
  Report Type: 
  Country: None (occurrence: None)
  Receive Date: 20100503
  Receipt Date: 20100426
  Transmission Date: 20101027
  Serious: Yes (Death, Hospitalization, Other)
  Sender: FDA-Public Use
  Company Number: US-CELGENEUS-163-21880-10020272

PATIENT
  Sex: Female
  Weight: 67.646 kg

DRUGS (20)
  1. REVLIMID [Suspect]
     Indication: MULTIPLE MYELOMA
     Route: 048
     Dates: start: 20091125, end: 20100113
  2. VELCADE [Concomitant]
     Indication: MULTIPLE MYELOMA
     Route: 051
     Dates: start: 20091113, end: 20091228
  3. PAMIDRONATE DISODIUM [Concomitant]
     Route: 065
     Dates: start: 20091228
  4. BLOOD TRANSFUSION PRBC [Concomitant]
     Dosage: 2 UNITS
     Route: 051
     Dates: start: 20100101
  5. ACETAMINOPHEN [Concomitant]
     Indication: DRUG USE FOR UNKNOWN INDICATION
     Route: 048
  6. AMLODIPINE [Concomitant]
     Indication: DRUG USE FOR UNKNOWN INDICATION
     Route: 048
  7. ATENOLOL [Concomitant]
     Indication: DRUG USE FOR UNKNOWN INDICATION
     Route: 048
  8. FENTANYL [Concomitant]
     Indication: DRUG USE FOR UNKNOWN INDICATION
     Dosage: 12 (12.5)MCG/HR 72 HR
     Route: 062
  9. LEXAPRO [Concomitant]
     Indication: DRUG USE FOR UNKNOWN INDICATION
     Route: 048
  10. LOSARTAN POTASSIUM [Concomitant]
     Indication: DRUG USE FOR UNKNOWN INDICATION
     Route: 048
  11. NORVASC [Concomitant]
     Indication: DRUG USE FOR UNKNOWN INDICATION
     Route: 048
  12. REQUIP [Concomitant]
     Indication: DRUG USE FOR UNKNOWN INDICATION
     Route: 048
  13. ACYCLOVIR [Concomitant]
     Indication: HERPES ZOSTER
     Route: 065
  14. COUMADIN [Concomitant]
     Indication: DRUG USE FOR UNKNOWN INDICATION
     Route: 065
  15. DEXAMETHASONE [Concomitant]
     Indication: DRUG USE FOR UNKNOWN INDICATION
     Route: 065
  16. COMPAZINE [Concomitant]
     Indication: DRUG USE FOR UNKNOWN INDICATION
     Route: 065
  17. GRANISETRON [Concomitant]
     Indication: DRUG USE FOR UNKNOWN INDICATION
     Route: 065
  18. SODIUM CHLORIDE [Concomitant]
     Indication: DRUG USE FOR UNKNOWN INDICATION
     Route: 065
  19. ATORVASTATIN [Concomitant]
     Indication: DRUG USE FOR UNKNOWN INDICATION
     Route: 065
  20. VALTREX [Concomitant]
     Indication: DRUG USE FOR UNKNOWN INDICATION
     Route: 065

REACTIONS (9)
  - ANAEMIA [None]
  - ASTHENIA [None]
  - DIARRHOEA [None]
  - DIVERTICULITIS [None]
  - FALL [None]
  - INTESTINAL PERFORATION [None]
  - NEUROPATHY PERIPHERAL [None]
  - RASH PUSTULAR [None]
  - SEPSIS [None]
